FAERS Safety Report 5110795-X (Version None)
Quarter: 2006Q3

REPORT INFORMATION
  Report Type: 
  Country: None (occurrence: None)
  Receive Date: 20060919
  Receipt Date: 20060907
  Transmission Date: 20061208
  Serious: Yes (Other)
  Sender: FDA-Public Use
  Company Number: 2006086295

PATIENT
  Age: 58 Year
  Sex: Female
  Weight: 97.5234 kg

DRUGS (6)
  1. CELEBREX [Suspect]
     Indication: ARTHRITIS
     Dosage: 400 MG (200 MG, 2 IN 1 D)
     Dates: start: 19990101
  2. PREDNISONE TAB [Concomitant]
  3. MUSCLE RELAXANTS (MUSCLE RELAXANTS) [Concomitant]
  4. DARVOCET [Concomitant]
  5. TRIAMTERENE (TRIAMTERENE) [Concomitant]
  6. ANTIHYPERTENSIVES (ANTIHYPERTENSIVES) [Concomitant]

REACTIONS (18)
  - ANGINA PECTORIS [None]
  - ARTHRITIS [None]
  - BLOOD CHOLESTEROL INCREASED [None]
  - CHOLELITHIASIS [None]
  - CONDITION AGGRAVATED [None]
  - DIVERTICULITIS [None]
  - DIVERTICULUM [None]
  - DYSKINESIA OESOPHAGEAL [None]
  - DYSPHAGIA [None]
  - DYSPNOEA [None]
  - ERYTHEMA [None]
  - GASTRITIS HAEMORRHAGIC [None]
  - GASTROOESOPHAGEAL REFLUX DISEASE [None]
  - HAEMORRHOIDS [None]
  - HIATUS HERNIA [None]
  - MUSCLE TIGHTNESS [None]
  - OESOPHAGITIS [None]
  - VOMITING [None]
